FAERS Safety Report 5618926-X (Version None)
Quarter: 2008Q1

REPORT INFORMATION
  Report Type: 
  Country: None (occurrence: None)
  Receive Date: 20080207
  Receipt Date: 20080128
  Transmission Date: 20080703
  Serious: Yes (Other)
  Sender: FDA-Public Use
  Company Number: JP-SANOFI-SYNTHELABO-A01200800669

PATIENT
  Age: 57 Year
  Sex: Female

DRUGS (2)
  1. ALEVIATIN [Suspect]
     Dosage: UNK
     Route: 065
  2. MYSLEE [Suspect]
     Indication: DRUG USE FOR UNKNOWN INDICATION
     Dosage: 10 MG
     Route: 048
     Dates: start: 20060501

REACTIONS (1)
  - LIVER DISORDER [None]
